FAERS Safety Report 13397311 (Version 1)
Quarter: 2017Q2

REPORT INFORMATION
  Report Type: Spontaneous
  Country: GB (occurrence: GB)
  Receive Date: 20170403
  Receipt Date: 20170403
  Transmission Date: 20170830
  Serious: Yes (Other)
  Sender: FDA-Public Use
  Company Number: GB-TEVA-753900ACC

PATIENT
  Age: 38 Year
  Sex: Male
  Weight: 69.85 kg

DRUGS (3)
  1. MEMANTINE HYDROCHLORIDE. [Suspect]
     Active Substance: MEMANTINE HYDROCHLORIDE
     Indication: NYSTAGMUS
     Route: 048
     Dates: start: 201001
  2. SOLIFENACIN SUCCINATE. [Concomitant]
     Active Substance: SOLIFENACIN SUCCINATE
  3. DIMETHYL FUMARATE [Concomitant]
     Active Substance: DIMETHYL FUMARATE

REACTIONS (1)
  - Excessive cerumen production [Not Recovered/Not Resolved]

NARRATIVE: CASE EVENT DATE: 201006
